FAERS Safety Report 6084975-3 (Version None)
Quarter: 2009Q1

REPORT INFORMATION
  Report Type: 
  Country: None (occurrence: None)
  Receive Date: 20090220
  Receipt Date: 20090211
  Transmission Date: 20090719
  Serious: Yes (Other)
  Sender: FDA-Public Use
  Company Number: US-JNJFOC-20090203371

PATIENT
  Sex: Female
  Weight: 72.58 kg

DRUGS (1)
  1. TOPAMAX [Suspect]
     Indication: MIGRAINE PROPHYLAXIS
     Route: 048

REACTIONS (1)
  - ABNORMAL SENSATION IN EYE [None]
